FAERS Safety Report 7811254-3 (Version None)
Quarter: 2011Q4

REPORT INFORMATION
  Report Type: 
  Country: None (occurrence: None)
  Receive Date: 20111012
  Receipt Date: 20111012
  Transmission Date: 20120403
  Serious: Yes (Hospitalization)
  Sender: FDA-Public Use
  Company Number: None

PATIENT
  Sex: Male
  Weight: 86.1834 kg

DRUGS (2)
  1. LOVAZA [Suspect]
     Indication: HYPERTENSION
     Dosage: 1 GM DAILY ORAL
     Route: 048
     Dates: start: 20101227, end: 20110326
  2. LOVAZA [Suspect]
     Indication: BLOOD CHOLESTEROL
     Dosage: 1 GM DAILY ORAL
     Route: 048
     Dates: start: 20101227, end: 20110326

REACTIONS (4)
  - TRANSIENT ISCHAEMIC ATTACK [None]
  - BALANCE DISORDER [None]
  - HYPOAESTHESIA [None]
  - CEREBROVASCULAR ACCIDENT [None]
